FAERS Safety Report 9066871 (Version 1)
Quarter: 2013Q1

REPORT INFORMATION
  Report Type: Spontaneous
  Country: US (occurrence: US)
  Receive Date: 20130131
  Receipt Date: 20130131
  Transmission Date: 20140127
  Serious: No
  Sender: FDA-Public Use
  Company Number: US-ABBOTT-12P-163-1007657-00

PATIENT
  Sex: Female
  Weight: 45.4 kg

DRUGS (1)
  1. HUMIRA [Suspect]
     Indication: CROHN^S DISEASE
     Route: 058
     Dates: start: 201209

REACTIONS (4)
  - Incorrect storage of drug [Recovered/Resolved]
  - Pharyngitis streptococcal [Recovered/Resolved]
  - Rash generalised [Recovered/Resolved]
  - Streptococcal infection [Recovered/Resolved]
